FAERS Safety Report 14616765 (Version 1)
Quarter: 2018Q1

REPORT INFORMATION
  Report Type: Spontaneous
  Country: GB (occurrence: GB)
  Receive Date: 20180309
  Receipt Date: 20180309
  Transmission Date: 20180509
  Serious: Yes (Other)
  Sender: FDA-Public Use
  Company Number: GB-TEVA-2018-GB-867988

PATIENT
  Age: 70 Year
  Sex: Male
  Weight: 59 kg

DRUGS (8)
  1. ZEROCREAM [Concomitant]
     Dosage: USE AS DIRECTED
     Route: 065
  2. CETIRIZINE [Concomitant]
     Active Substance: CETIRIZINE HYDROCHLORIDE
     Dosage: 1 DOSAGE FORMS DAILY;
     Route: 065
  3. CETRABEN EMOLLIENT CREAM [Concomitant]
     Dosage: 4 DOSAGE FORMS DAILY;
     Route: 065
  4. FLUCLOXACILLIN [Concomitant]
     Active Substance: FLUCLOXACILLIN
     Dosage: 4 DOSAGE FORMS DAILY;
     Route: 065
  5. CLARITHROMYCIN. [Concomitant]
     Active Substance: CLARITHROMYCIN
     Dosage: 2 DOSAGE FORMS DAILY;
     Route: 065
  6. BETAMETHASONE VALERATE. [Concomitant]
     Active Substance: BETAMETHASONE VALERATE
     Dosage: 2 DOSAGE FORMS DAILY;
     Route: 065
  7. CO-AMOXICLAV [Suspect]
     Active Substance: AMOXICILLIN\CLAVULANIC ACID
     Route: 065
  8. DOVOBET [Concomitant]
     Active Substance: BETAMETHASONE\CALCIPOTRIENE
     Dosage: 1 DOSAGE FORMS DAILY;
     Route: 065

REACTIONS (2)
  - Swelling face [Recovering/Resolving]
  - Rash [Unknown]
